FAERS Safety Report 4784545-0 (Version None)
Quarter: 2005Q3

REPORT INFORMATION
  Report Type: 
  Country: None (occurrence: None)
  Receive Date: 20050930
  Receipt Date: 20050926
  Transmission Date: 20060218
  Serious: Yes (Death)
  Sender: FDA-Public Use
  Company Number: US-JNJFOC-20041204017

PATIENT
  Sex: Female
  Weight: 83.01 kg

DRUGS (9)
  1. DURAGESIC-100 [Suspect]
     Route: 062
  2. DURAGESIC-100 [Suspect]
     Route: 062
  3. LANTUS [Concomitant]
     Dosage: INJECT AS DIRECTED
     Route: 050
  4. CLONAZEPAM [Concomitant]
     Route: 048
  5. PREVACID [Concomitant]
     Route: 048
  6. HYDROCODONE 5/500 [Concomitant]
     Route: 048
  7. HYDROCODONE 5/500 [Concomitant]
     Dosage: 5/500, ONE TABLET 4 TIMES A DAY
     Route: 048
  8. CIPRO [Concomitant]
     Route: 048
  9. IBUPROFEN [Concomitant]
     Route: 048

REACTIONS (3)
  - ACCIDENTAL OVERDOSE [None]
  - BACK PAIN [None]
  - NARCOTIC INTOXICATION [None]
